FAERS Safety Report 25186858 (Version 1)
Quarter: 2025Q2

REPORT INFORMATION
  Report Type: Report from Study
  Country: US (occurrence: US)
  Receive Date: 20250411
  Receipt Date: 20250411
  Transmission Date: 20250717
  Serious: Yes (Other)
  Sender: ABBVIE
  Company Number: US-ABBVIE-6215347

PATIENT
  Age: 57 Year
  Sex: Female

DRUGS (3)
  1. RINVOQ [Suspect]
     Active Substance: UPADACITINIB
     Indication: Autoimmune disorder
     Dosage: STRENGTH: 15 MG
     Route: 048
     Dates: start: 202410, end: 202502
  2. RINVOQ [Suspect]
     Active Substance: UPADACITINIB
     Indication: Autoimmune disorder
     Dosage: STRENGTH: 15 MG
     Route: 048
     Dates: start: 20250401
  3. RINVOQ [Suspect]
     Active Substance: UPADACITINIB
     Indication: Autoimmune disorder
     Dosage: STRENGTH: 15 MG
     Route: 048
     Dates: start: 202502, end: 20250319

REACTIONS (5)
  - Dental bone graft [Unknown]
  - COVID-19 [Unknown]
  - Pain [Unknown]
  - Illness [Recovered/Resolved]
  - Illness [Recovered/Resolved]

NARRATIVE: CASE EVENT DATE: 20241029
